FAERS Safety Report 9331000 (Version 1)
Quarter: 2013Q2

REPORT INFORMATION
  Report Type: Report from Study
  Country: NO (occurrence: NO)
  Receive Date: 20130605
  Receipt Date: 20130605
  Transmission Date: 20140414
  Serious: Yes (Other)
  Sender: FDA-Public Use
  Company Number: NO-ROCHE-646536

PATIENT
  Sex: 0

DRUGS (10)
  1. RITUXIMAB [Suspect]
     Indication: LYMPHOMA
     Dosage: INDICATION REPORTED AS: LYMPHOMA (DLBCL OR FL)
     Route: 065
  2. DOXORUBICIN [Suspect]
     Indication: LYMPHOMA
     Route: 042
  3. VINCRISTINE [Suspect]
     Indication: LYMPHOMA
     Dosage: MAXIMUM 2 MG ON DAY 1
     Route: 042
  4. ETOPOSIDE [Suspect]
     Indication: LYMPHOMA
     Dosage: ON DAY 1 TO 3
     Route: 042
  5. PREDNISONE [Suspect]
     Indication: LYMPHOMA
     Dosage: FOR DAYS 1-5
     Route: 048
  6. METHOTREXATE [Suspect]
     Indication: LYMPHOMA
     Dosage: 3 G/M2 AS 24 HOUR INFUSION
     Route: 042
  7. CYTARABINE [Suspect]
     Indication: LYMPHOMA
     Dosage: 3 G/M2  FOR 2 DAYS
     Route: 042
  8. CYCLOPHOSPHAMIDE [Suspect]
     Indication: LYMPHOMA
     Route: 042
  9. PEGFILGRASTIM [Concomitant]
     Route: 065
  10. FOLIC ACID [Concomitant]

REACTIONS (8)
  - Infection [Unknown]
  - Haematotoxicity [Unknown]
  - Pneumocystis jirovecii pneumonia [Unknown]
  - Sepsis [Unknown]
  - Cardiac failure [Unknown]
  - Renal failure [Unknown]
  - Gastrointestinal toxicity [Unknown]
  - Mucosal inflammation [Unknown]
